FAERS Safety Report 7198402-6 (Version None)
Quarter: 2010Q4

REPORT INFORMATION
  Report Type: 
  Country: None (occurrence: None)
  Receive Date: 20101223
  Receipt Date: 20101223
  Transmission Date: 20110411
  Serious: Yes (Other)
  Sender: FDA-Public Use
  Company Number: None

PATIENT
  Sex: Female

DRUGS (1)
  1. COPAXONE [Suspect]
     Indication: MULTIPLE SCLEROSIS
     Dosage: 20MG DAILY SQ
     Route: 058
     Dates: start: 20100518, end: 20101222

REACTIONS (7)
  - ANXIETY [None]
  - CHILLS [None]
  - DYSPNOEA [None]
  - IMMEDIATE POST-INJECTION REACTION [None]
  - LOSS OF CONSCIOUSNESS [None]
  - URTICARIA [None]
  - VOMITING [None]
